FAERS Safety Report 8108146-1 (Version None)
Quarter: 2011Q4

REPORT INFORMATION
  Report Type: 
  Country: None (occurrence: None)
  Receive Date: 20111227
  Receipt Date: 20111007
  Transmission Date: 20120403
  Serious: Yes (Other)
  Sender: FDA-Public Use
  Company Number: PHEH2011US06329

PATIENT
  Sex: Female

DRUGS (1)
  1. GILENYA [Suspect]
     Indication: MULTIPLE SCLEROSIS

REACTIONS (3)
  - WHITE BLOOD CELL COUNT DECREASED [None]
  - PNEUMONIA [None]
  - MULTIPLE SCLEROSIS RELAPSE [None]
